FAERS Safety Report 25531322 (Version 1)
Quarter: 2025Q3

REPORT INFORMATION
  Report Type: Spontaneous
  Country: EU (occurrence: EU)
  Receive Date: 20250708
  Receipt Date: 20250708
  Transmission Date: 20251021
  Serious: Yes (Other)
  Sender: SANDOZ
  Company Number: EU-SUN PHARMACEUTICAL INDUSTRIES LTD-2025RR-512759

PATIENT
  Age: 47 Year
  Sex: Male

DRUGS (1)
  1. TERIFLUNOMIDE [Suspect]
     Active Substance: TERIFLUNOMIDE
     Indication: Multiple sclerosis
     Route: 065

REACTIONS (2)
  - Herpes simplex encephalitis [Unknown]
  - Inappropriate antidiuretic hormone secretion [Unknown]
